FAERS Safety Report 7820590-6 (Version None)
Quarter: 2011Q4

REPORT INFORMATION
  Report Type: 
  Country: None (occurrence: None)
  Receive Date: 20111018
  Receipt Date: 20111006
  Transmission Date: 20120403
  Serious: Yes (Other)
  Sender: FDA-Public Use
  Company Number: US-JNJFOC-20110810534

PATIENT
  Sex: Female
  Weight: 83.92 kg

DRUGS (2)
  1. REMICADE [Suspect]
     Indication: RHEUMATOID ARTHRITIS
     Route: 042
     Dates: start: 20080101, end: 20110601
  2. ANTIBIOTIC [Suspect]
     Indication: PNEUMONIA
     Route: 048
     Dates: start: 20110601, end: 20110601

REACTIONS (6)
  - PNEUMONIA [None]
  - DEHYDRATION [None]
  - WEIGHT DECREASED [None]
  - APHAGIA [None]
  - CLOSTRIDIAL INFECTION [None]
  - NAUSEA [None]
